FAERS Safety Report 8338736-2 (Version None)
Quarter: 2012Q2

REPORT INFORMATION
  Report Type: 
  Country: None (occurrence: None)
  Receive Date: 20120504
  Receipt Date: 20120420
  Transmission Date: 20120825
  Serious: Yes (Other)
  Sender: FDA-Public Use
  Company Number: CHPA2012US002703

PATIENT
  Sex: Female

DRUGS (10)
  1. DIPROLENE [Concomitant]
     Indication: DRY SKIN
     Dosage: 2 TIMES A DAY
     Route: 061
  2. EXCEDRIN (MIGRAINE) [Suspect]
     Indication: MIGRAINE
     Dosage: 2 DF, UNK
     Route: 048
     Dates: start: 20110101
  3. ALBUTEROL [Concomitant]
     Dosage: 2 PUFFS, 4 TIMES A DAY
  4. ULTRAM [Concomitant]
     Indication: PAIN
     Dosage: 50 MG, UNK
  5. METFORMIN HCL [Concomitant]
  6. CELEXA [Concomitant]
     Dosage: 40 MG, QD
     Route: 048
  7. FLEXERIL [Concomitant]
     Indication: MUSCLE SPASMS
     Dosage: 10 MG, QD
  8. GAS-X PREVENTION [Suspect]
     Dosage: UNK, UNK
     Route: 048
  9. NSAID'S [Concomitant]
     Indication: BACK PAIN
  10. DAYPRO [Concomitant]
     Dosage: 600 MG, QD

REACTIONS (11)
  - DIZZINESS [None]
  - WHITE BLOOD CELL COUNT INCREASED [None]
  - GASTRIC DISORDER [None]
  - HEPATOMEGALY [None]
  - FATIGUE [None]
  - BLOOD ALKALINE PHOSPHATASE INCREASED [None]
  - CARBON DIOXIDE INCREASED [None]
  - BLOOD GLUCOSE INCREASED [None]
  - RENAL CYST [None]
  - LYMPHOCYTE COUNT INCREASED [None]
  - ABDOMINAL PAIN UPPER [None]
